FAERS Safety Report 18145446 (Version 1)
Quarter: 2020Q3

REPORT INFORMATION
  Report Type: Spontaneous
  Country: US (occurrence: US)
  Receive Date: 20200813
  Receipt Date: 20200813
  Transmission Date: 20201103
  Serious: Yes (Other)
  Sender: FDA-Public Use
  Company Number: US-ALVOGEN-2020-ALVOGEN-113850

PATIENT
  Sex: Female

DRUGS (3)
  1. METHADONE [Concomitant]
     Active Substance: METHADONE HYDROCHLORIDE
     Indication: PRODUCT USED FOR UNKNOWN INDICATION
  2. HYDROCODONE BITARTRATE. [Suspect]
     Active Substance: HYDROCODONE BITARTRATE
     Indication: PAIN
  3. OXYCODONE [Suspect]
     Active Substance: OXYCODONE
     Indication: PAIN

REACTIONS (3)
  - Agoraphobia [Unknown]
  - Drug dependence [Unknown]
  - Panic disorder [Unknown]
